FAERS Safety Report 22263545 (Version 1)
Quarter: 2023Q2

REPORT INFORMATION
  Report Type: Spontaneous
  Country: US (occurrence: US)
  Receive Date: 20230428
  Receipt Date: 20230428
  Transmission Date: 20230721
  Serious: Yes (Hospitalization, Other)
  Sender: FDA-Public Use
  Company Number: US-MLMSERVICE-20230411-4208388-1

PATIENT
  Age: 5 Decade
  Sex: Male

DRUGS (8)
  1. CISPLATIN [Suspect]
     Active Substance: CISPLATIN
     Indication: Testicular germ cell cancer metastatic
     Dosage: 20 MG/M2 IV OVER 1 H ON DAYS 1-5
     Route: 042
     Dates: start: 202007
  2. PACLITAXEL [Suspect]
     Active Substance: PACLITAXEL
     Indication: Testicular germ cell cancer metastatic
     Dosage: 120 MG/M2 IV OVER 3 H ON DAYS 1 AND 2
     Route: 042
     Dates: start: 202007
  3. IFOSFAMIDE [Suspect]
     Active Substance: IFOSFAMIDE
     Indication: Testicular germ cell cancer metastatic
     Dosage: 1200 MG/M2 OVER 1 H ON DAYS 1-5
     Route: 042
     Dates: start: 202007
  4. MAGNESIUM SULFATE [Concomitant]
     Active Substance: MAGNESIUM SULFATE
     Dates: start: 202007
  5. MESNA [Concomitant]
     Active Substance: MESNA
     Dosage: IMMEDIATELY PRIOR TO IFOSFAMIDE AND 4 H AFTER IFOSFAMIDE
     Route: 042
     Dates: start: 202007
  6. SODIUM CHLORIDE [Concomitant]
     Active Substance: SODIUM CHLORIDE
     Route: 042
     Dates: start: 202007
  7. POTASSIUM CHLORIDE [Concomitant]
     Active Substance: POTASSIUM CHLORIDE
     Dates: start: 202007
  8. MESNA [Concomitant]
     Active Substance: MESNA
     Dosage: 6 H AFTER IFOSFAMIDE
     Route: 048

REACTIONS (3)
  - Anaemia [Unknown]
  - Pyrexia [Unknown]
  - Off label use [Unknown]
